FAERS Safety Report 23426996 (Version 6)
Quarter: 2024Q1

REPORT INFORMATION
  Report Type: Spontaneous
  Country: US (occurrence: US)
  Receive Date: 20240122
  Receipt Date: 20240306
  Transmission Date: 20240410
  Serious: Yes (Other)
  Sender: FDA-Public Use
  Company Number: US-PFIZER INC-PV202400003867

PATIENT
  Age: 15 Year
  Sex: Male
  Weight: 44.06 kg

DRUGS (2)
  1. GENOTROPIN [Suspect]
     Active Substance: SOMATROPIN
     Indication: Growth hormone deficiency
     Dosage: 1.8 MG, DAILY
  2. GENOTROPIN [Suspect]
     Active Substance: SOMATROPIN
     Dosage: 1.6 MG, 1X/DAY
     Route: 058

REACTIONS (6)
  - Incorrect dose administered by device [Unknown]
  - Drug dose omission by device [Unknown]
  - Blood growth hormone increased [Unknown]
  - Device mechanical issue [Unknown]
  - Device leakage [Unknown]
  - Device issue [Unknown]
